FAERS Safety Report 8609397-X (Version None)
Quarter: 2012Q3

REPORT INFORMATION
  Report Type: 
  Country: None (occurrence: None)
  Receive Date: 20120821
  Receipt Date: 20120809
  Transmission Date: 20120928
  Serious: No
  Sender: FDA-Public Use
  Company Number: US-ASTRAZENECA-2012SE56302

PATIENT
  Age: 56 Year
  Sex: Female
  Weight: 54.4 kg

DRUGS (2)
  1. OTHER MEDICATION [Concomitant]
  2. TOPROL-XL [Suspect]
     Indication: CHEST DISCOMFORT
     Route: 048

REACTIONS (2)
  - DRUG LEVEL CHANGED [None]
  - OFF LABEL USE [None]
